FAERS Safety Report 12900785 (Version 1)
Quarter: 2016Q4

REPORT INFORMATION
  Report Type: Spontaneous
  Country: IE (occurrence: IE)
  Receive Date: 20161101
  Receipt Date: 20161101
  Transmission Date: 20170207
  Serious: Yes (Other)
  Sender: FDA-Public Use
  Company Number: PHFR2016IE008641

PATIENT
  Age: 85 Year
  Sex: Male

DRUGS (17)
  1. ULTIBRO BREEZHALER [Suspect]
     Active Substance: GLYCOPYRRONIUM\INDACATEROL
     Indication: RESPIRATORY DISORDER
     Dosage: 1 DF, UNK
     Route: 055
  2. NU-SEALS ASPIRIN [Concomitant]
     Indication: PRODUCT USED FOR UNKNOWN INDICATION
     Dosage: 75 MG, QD
     Route: 048
     Dates: start: 20121009
  3. CORDARONE [Concomitant]
     Active Substance: AMIODARONE HYDROCHLORIDE
     Indication: ARRHYTHMIA
     Dosage: 100 MG, QD
     Route: 048
     Dates: start: 20120911
  4. DELTA-CORTRIL [Concomitant]
     Indication: RESPIRATORY DISORDER
     Dosage: 1 MG, UNK
     Route: 048
     Dates: start: 20051221
  5. AVODART [Concomitant]
     Active Substance: DUTASTERIDE
     Indication: BENIGN PROSTATIC HYPERPLASIA
     Dosage: 1 DF, QD
     Route: 048
     Dates: start: 20120810
  6. FRUSEMIDE [Concomitant]
     Active Substance: FUROSEMIDE
     Indication: CARDIAC DISORDER
     Dosage: 40 MG, QD
     Route: 065
     Dates: start: 20120911
  7. LANSOPRAZOLE. [Concomitant]
     Active Substance: LANSOPRAZOLE
     Indication: GASTROINTESTINAL DISORDER
     Dosage: 30 MG, UNK
     Route: 048
     Dates: start: 20110407
  8. COMBIVENT [Concomitant]
     Active Substance: ALBUTEROL SULFATE\IPRATROPIUM BROMIDE
     Indication: PRODUCT USED FOR UNKNOWN INDICATION
     Dosage: 1 DF (500 UG + 2.5 MG), PRN
     Route: 065
  9. INSPRA [Concomitant]
     Active Substance: EPLERENONE
     Indication: PRODUCT USED FOR UNKNOWN INDICATION
     Dosage: 25 MG, QD
     Route: 048
     Dates: start: 20140221
  10. PROCORALAN [Concomitant]
     Active Substance: IVABRADINE
     Indication: ANGINA PECTORIS
     Dosage: 2.5 MG, BID
     Route: 048
     Dates: start: 20121114
  11. UNIPHYLLINE [Concomitant]
     Indication: RESPIRATORY DISORDER
     Dosage: 200 MG, BID
     Route: 048
     Dates: start: 20110325
  12. EXPUTEX [Concomitant]
     Indication: RESPIRATORY DISORDER
     Dosage: 250 MG, TID
     Route: 048
     Dates: start: 20120911
  13. LIPITOR [Concomitant]
     Active Substance: ATORVASTATIN CALCIUM
     Indication: HYPERLIPIDAEMIA
     Dosage: 40 MG, QD
     Route: 048
     Dates: start: 20100927
  14. SALAMOL EASY BREATH [Concomitant]
     Indication: RESPIRATORY DISORDER
     Dosage: 100 UG, QD
     Route: 055
     Dates: start: 20091027
  15. COZAAR [Concomitant]
     Active Substance: LOSARTAN POTASSIUM
     Indication: HYPERTENSION
     Dosage: 100 MG, QD
     Route: 048
     Dates: start: 20070215
  16. FYBOGEL [Concomitant]
     Active Substance: PLANTAGO OVATA SEED
     Indication: CONSTIPATION
     Dosage: 1 DF (3.5 G + 135 MG), QD
     Route: 048
     Dates: start: 20150106
  17. GALFER [Concomitant]
     Active Substance: IRON
     Indication: IRON DEFICIENCY
     Dosage: 2.5 MG, QD
     Route: 048
     Dates: start: 20030203

REACTIONS (6)
  - Productive cough [Unknown]
  - Product use issue [Unknown]
  - Erythema [Unknown]
  - Fatigue [Unknown]
  - Cough [Unknown]
  - Anaemia [Unknown]

NARRATIVE: CASE EVENT DATE: 20151027
